FAERS Safety Report 7618314-0 (Version None)
Quarter: 2011Q3

REPORT INFORMATION
  Report Type: 
  Country: None (occurrence: None)
  Receive Date: 20110718
  Receipt Date: 20110704
  Transmission Date: 20111222
  Serious: Yes (Other)
  Sender: FDA-Public Use
  Company Number: US-ROCHE-788094

PATIENT

DRUGS (2)
  1. RIBAVIRIN [Suspect]
     Route: 065
  2. PEG-INTRON [Suspect]
     Dosage: ALFA TYPE NOT SPECIFIED
     Route: 065

REACTIONS (6)
  - HEPATOBILIARY DISEASE [None]
  - GASTROINTESTINAL DISORDER [None]
  - MENTAL DISORDER [None]
  - BLOOD DISORDER [None]
  - INFECTION [None]
  - CARDIOVASCULAR DISORDER [None]
